FAERS Safety Report 8397643-X (Version None)
Quarter: 2012Q2

REPORT INFORMATION
  Report Type: 
  Country: None (occurrence: None)
  Receive Date: 20120531
  Receipt Date: 20120529
  Transmission Date: 20120825
  Serious: No
  Sender: FDA-Public Use
  Company Number: US-PFIZER INC-2012128851

PATIENT
  Sex: Male

DRUGS (1)
  1. TIKOSYN [Suspect]
     Dosage: 250 UG, 2X/DAY

REACTIONS (5)
  - ASTHENIA [None]
  - FLUSHING [None]
  - FATIGUE [None]
  - SKIN BURNING SENSATION [None]
  - HEADACHE [None]
